FAERS Safety Report 19633144 (Version 1)
Quarter: 2021Q3

REPORT INFORMATION
  Report Type: Spontaneous
  Country: US (occurrence: US)
  Receive Date: 20210729
  Receipt Date: 20210729
  Transmission Date: 20211014
  Serious: Yes (Hospitalization)
  Sender: FDA-Public Use
  Company Number: US-TEVA-2021-US-1935851

PATIENT
  Age: 33 Year
  Sex: Female

DRUGS (8)
  1. LEUPROLIDE [Suspect]
     Active Substance: LEUPROLIDE
     Indication: OVULATION INDUCTION
     Dosage: 4MG
     Route: 065
  2. LETROZOLE. [Concomitant]
     Active Substance: LETROZOLE
     Dosage: 10G DAY 8?9
     Route: 065
  3. CABERGOLINE. [Suspect]
     Active Substance: CABERGOLINE
     Indication: OVARIAN HYPERSTIMULATION SYNDROME
     Dosage: 0.5MG
     Route: 067
  4. LETROZOLE. [Concomitant]
     Active Substance: LETROZOLE
     Indication: OVULATION INDUCTION
     Dosage: 7.5MG DAY 1?7
     Route: 065
  5. LEUPROLIDE [Suspect]
     Active Substance: LEUPROLIDE
     Indication: DRUG THERAPY
     Dosage: DEPOT 3.75MG
     Route: 065
  6. DOXYCYCLINE. [Concomitant]
     Active Substance: DOXYCYCLINE
     Indication: INFECTION PROPHYLAXIS
     Route: 065
  7. CABERGOLINE. [Suspect]
     Active Substance: CABERGOLINE
     Indication: PROPHYLAXIS
  8. CETRORELIX [Concomitant]
     Active Substance: CETRORELIX
     Indication: DRUG THERAPY
     Route: 065

REACTIONS (1)
  - Ovarian hyperstimulation syndrome [Recovering/Resolving]
